FAERS Safety Report 8117021-8 (Version None)
Quarter: 2012Q1

REPORT INFORMATION
  Report Type: 
  Country: None (occurrence: None)
  Receive Date: 20120131
  Receipt Date: 20120116
  Transmission Date: 20120608
  Serious: Yes (Hospitalization)
  Sender: FDA-Public Use
  Company Number: JP-2012-10217

PATIENT
  Age: 41 Year
  Sex: Male
  Weight: 95 kg

DRUGS (16)
  1. CALONAL (PARACETAMOL) TABLET [Concomitant]
  2. SALOBEL (ALLOPURINOL) TABLET [Concomitant]
  3. URALYT (POTASSIUM CITRATE, SODIUM CITRATE ACID) TABLET [Concomitant]
  4. URINORM (BENZBROMARONE) [Concomitant]
  5. DIOVAN [Concomitant]
  6. OMEPRAL (OMEPRAZOLE) TABLET [Concomitant]
  7. JUSO (SODIUM BICARBONATE) [Concomitant]
  8. WYTENS (GUANABENZ ACETATE) TABLET [Concomitant]
  9. AMLODIN (AMLODIPINE BESILATE) ORODISPERSIBLE TABLET [Concomitant]
  10. TRANSAMIN (TRANEXAMIC ACID) CAPSULE [Concomitant]
  11. MUCODYNE (CARBOCISTEINE) TABLET [Concomitant]
  12. AZUNOL (SODIUM GUALENATE) MOUTH WASH [Concomitant]
  13. COLCHICINE (COLCHICINE) TABLET [Concomitant]
  14. OPC-41061 (TOLVAPTAN) TABLET [Suspect]
     Indication: CONGENITAL CYSTIC KIDNEY DISEASE
     Dosage: 90 MG MILLIGRAM(S), DAILY DOSE, ORAL
     Route: 048
     Dates: start: 20110309, end: 20120109
  15. BANAN (CEFPODOXIME PROXETIL) TABLET [Concomitant]
  16. METHYCOOL (MECOBALAMIN) [Concomitant]

REACTIONS (9)
  - SEPSIS [None]
  - ALANINE AMINOTRANSFERASE INCREASED [None]
  - ASPARTATE AMINOTRANSFERASE INCREASED [None]
  - RENAL CYST INFECTION [None]
  - ARTHRALGIA [None]
  - ACTIVATED PARTIAL THROMBOPLASTIN TIME PROLONGED [None]
  - PROTHROMBIN TIME PROLONGED [None]
  - BACK PAIN [None]
  - BLOOD PRESSURE INCREASED [None]
